FAERS Safety Report 7958554-4 (Version None)
Quarter: 2011Q4

REPORT INFORMATION
  Report Type: 
  Country: None (occurrence: None)
  Receive Date: 20111206
  Receipt Date: 20111128
  Transmission Date: 20120403
  Serious: Yes (Hospitalization)
  Sender: FDA-Public Use
  Company Number: US-BIOGENIDEC-2011BI037998

PATIENT
  Age: 59 Year
  Sex: Female

DRUGS (3)
  1. TYSABRI [Suspect]
     Indication: MULTIPLE SCLEROSIS
     Route: 042
     Dates: start: 20061206
  2. TYSABRI [Suspect]
     Route: 042
     Dates: start: 20110822
  3. AMPYRA [Concomitant]
     Dates: start: 20110401

REACTIONS (6)
  - MULTIPLE SCLEROSIS [None]
  - INFUSION SITE EXTRAVASATION [None]
  - COORDINATION ABNORMAL [None]
  - PAIN IN EXTREMITY [None]
  - MULTIPLE SCLEROSIS RELAPSE [None]
  - OEDEMA PERIPHERAL [None]
